FAERS Safety Report 13806101 (Version 1)
Quarter: 2017Q3

REPORT INFORMATION
  Report Type: Spontaneous
  Country: US (occurrence: US)
  Receive Date: 20170728
  Receipt Date: 20170728
  Transmission Date: 20171127
  Serious: No
  Sender: FDA-Public Use
  Company Number: US-AKRIMAX-TIR-2017-0402

PATIENT
  Sex: Female
  Weight: 58.11 kg

DRUGS (3)
  1. TIROSINT [Suspect]
     Active Substance: LEVOTHYROXINE SODIUM
     Indication: BASEDOW^S DISEASE
  2. TIROSINT [Suspect]
     Active Substance: LEVOTHYROXINE SODIUM
     Indication: HYPOTHYROIDISM
     Dosage: SEVEN 13MCG CAPSULES DAILY
     Route: 048
     Dates: start: 2017
  3. TIROSINT [Suspect]
     Active Substance: LEVOTHYROXINE SODIUM
     Indication: RADIOACTIVE IODINE THERAPY
     Dosage: SIX AND ONE HALF (1/2) 13 MCG CAPSULES DAILY
     Route: 048

REACTIONS (8)
  - Tachyphrenia [Unknown]
  - Intentional product misuse [Unknown]
  - Insomnia [Unknown]
  - Product quality issue [Unknown]
  - Heart rate increased [Unknown]
  - Hot flush [Unknown]
  - Weight decreased [Unknown]
  - Wrong technique in product usage process [Unknown]

NARRATIVE: CASE EVENT DATE: 2017
